FAERS Safety Report 22127294 (Version 1)
Quarter: 2023Q1

REPORT INFORMATION
  Report Type: Spontaneous
  Country: US (occurrence: US)
  Receive Date: 20230322
  Receipt Date: 20230322
  Transmission Date: 20230418
  Serious: No
  Sender: FDA-Public Use
  Company Number: US-ALLERGAN-2237293US

PATIENT
  Sex: Female

DRUGS (2)
  1. KYBELLA [Suspect]
     Active Substance: DEOXYCHOLIC ACID
     Indication: Product used for unknown indication
     Dosage: 4 DF, SINGLE
     Dates: start: 20221025, end: 20221025
  2. KYBELLA [Suspect]
     Active Substance: DEOXYCHOLIC ACID
     Dosage: 4 DF, SINGLE
     Dates: start: 20220912, end: 20220912

REACTIONS (4)
  - Skin discolouration [Unknown]
  - Tenderness [Unknown]
  - Swelling [Unknown]
  - Contusion [Unknown]
